FAERS Safety Report 24263718 (Version 1)
Quarter: 2024Q3

REPORT INFORMATION
  Report Type: Spontaneous
  Country: CH (occurrence: CH)
  Receive Date: 20240829
  Receipt Date: 20240829
  Transmission Date: 20241016
  Serious: Yes (Other)
  Sender: SK LIFE SCIENCE
  Company Number: CH-SK LIFE SCIENCE, INC-SKPVG-2024-001994

PATIENT

DRUGS (10)
  1. XCOPRI [Suspect]
     Active Substance: CENOBAMATE
     Indication: Drug resistance
     Dosage: 12.5 MG/DAY
     Route: 048
     Dates: start: 20240605, end: 20240618
  2. XCOPRI [Suspect]
     Active Substance: CENOBAMATE
     Indication: Temporal lobe epilepsy
     Dosage: 25 MG/DAY
     Route: 048
     Dates: start: 20240619, end: 20240702
  3. XCOPRI [Suspect]
     Active Substance: CENOBAMATE
     Dosage: 50 MG/DAY
     Route: 048
     Dates: start: 20240703, end: 20240716
  4. XCOPRI [Suspect]
     Active Substance: CENOBAMATE
     Dosage: 100 MG/DAY
     Route: 048
     Dates: start: 20240717, end: 20240730
  5. XCOPRI [Suspect]
     Active Substance: CENOBAMATE
     Dosage: 150 MG/DAY
     Route: 048
     Dates: start: 20240731
  6. ASPIRIN [Concomitant]
     Active Substance: ASPIRIN
     Indication: Prophylaxis
     Dosage: 100 MG 1XDAY
     Route: 048
  7. EUTHYROX [Concomitant]
     Active Substance: LEVOTHYROXINE SODIUM
     Indication: Prophylaxis
     Dosage: 75 MCG 1XDAY
     Route: 048
  8. TRAZODONE HYDROCHLORIDE [Concomitant]
     Active Substance: TRAZODONE HYDROCHLORIDE
     Indication: Prophylaxis
     Dosage: 25 MG 1XDAY
     Route: 048
  9. VALPORATE CHRONO [Concomitant]
     Indication: Prophylaxis
     Dosage: UNK
     Route: 048
  10. CLOBAZAM [Concomitant]
     Active Substance: CLOBAZAM
     Indication: Prophylaxis
     Dosage: UNK
     Route: 048

REACTIONS (2)
  - Angioedema [Recovering/Resolving]
  - Eyelid oedema [Recovering/Resolving]

NARRATIVE: CASE EVENT DATE: 20240731
